FAERS Safety Report 9513360 (Version 1)
Quarter: 2013Q1

REPORT INFORMATION
  Report Type: Spontaneous
  Country: US (occurrence: None)
  Receive Date: 20130305
  Receipt Date: 20130305
  Transmission Date: 20140127
  Serious: Yes (Other)
  Sender: FDA-Public Use
  Company Number: 163-21880-12101626

PATIENT
  Age: 91 Year
  Sex: Female
  Weight: 69.85 kg

DRUGS (14)
  1. REVLIMID (LENALIDOMIDE) (CAPSULES) [Suspect]
     Indication: LEUKAEMIA
     Route: 048
     Dates: start: 20120225
  2. ASPIRIN (ACETYLSALICYLIC ACID) [Concomitant]
  3. CALCIUM + VITAMIN D (LEKOVIT CA) [Concomitant]
  4. CELEBREX (CELECOXIB) [Concomitant]
  5. EYE VITAMINS (VITAMINS, OTHER COMBINATIONS) (EYE DROPS) [Concomitant]
  6. LASIX (FUROSEMIDE) [Concomitant]
  7. NEXIUM [Concomitant]
  8. OSTEO-BIFLEX (OSTEO BI-FLEX) [Concomitant]
  9. POTASSIUM (POTASSIUM) [Concomitant]
  10. PROCRIT (ERYTHROPOIETIN) [Concomitant]
  11. STOOL SOFTENER (DOCUSATE SODIUM) [Concomitant]
  12. SYNTHROID (LEVOTHYROXINE SODIUM) [Concomitant]
  13. VITAMIN C [Concomitant]
  14. ZYRTEC (CETIRIZINE HYDROCHLORIDE) [Concomitant]

REACTIONS (1)
  - Urinary tract infection [None]
